FAERS Safety Report 25949873 (Version 1)
Quarter: 2025Q4

REPORT INFORMATION
  Report Type: Spontaneous
  Country: US (occurrence: US)
  Receive Date: 20251022
  Receipt Date: 20251022
  Transmission Date: 20260117
  Serious: No
  Sender: PFIZER
  Company Number: US-PFIZER INC-202500207557

PATIENT
  Age: 75 Year
  Sex: Female

DRUGS (4)
  1. PRISTIQ EXTENDED-RELEASE [Suspect]
     Active Substance: DESVENLAFAXINE SUCCINATE
     Indication: Depression
     Dosage: 50 MG
  2. PRISTIQ EXTENDED-RELEASE [Suspect]
     Active Substance: DESVENLAFAXINE SUCCINATE
     Dosage: 25 MG (25MG TAPERING OFF, STARTED AT 3 DAYS ON, 1 DAY OFF)
  3. PRISTIQ EXTENDED-RELEASE [Suspect]
     Active Substance: DESVENLAFAXINE SUCCINATE
     Dosage: 25 MG (25MG TAPERING OFF, 2 DAYS ON, 1 DAY OFF)
  4. PRISTIQ EXTENDED-RELEASE [Suspect]
     Active Substance: DESVENLAFAXINE SUCCINATE
     Dosage: 25 MG (25MG TAPERING OFF, STARTED LAST WEEK, TAKING 1 DAY ON, 2 DAYS OFF)

REACTIONS (2)
  - Nightmare [Unknown]
  - Drug withdrawal syndrome [Unknown]
